FAERS Safety Report 15184071 (Version 2)
Quarter: 2018Q3

REPORT INFORMATION
  Report Type: Spontaneous
  Country: US (occurrence: US)
  Receive Date: 20180723
  Receipt Date: 20180911
  Transmission Date: 20181010
  Serious: No
  Sender: FDA-Public Use
  Company Number: US-009507513-1807USA007441

PATIENT
  Age: 29 Year
  Sex: Female
  Weight: 83.9 kg

DRUGS (3)
  1. NUVARING [Suspect]
     Active Substance: ETHINYL ESTRADIOL\ETONOGESTREL
     Dosage: 1 RING CONTINUOUSLY FOR 3 WEEKS; STRENGTH: 0.015/0.12(UNITS NOTE REPORTED)
     Route: 067
     Dates: start: 20180715
  2. NUVARING [Suspect]
     Active Substance: ETHINYL ESTRADIOL\ETONOGESTREL
     Dosage: 1 RING/3WEEKS
     Route: 067
     Dates: start: 2018
  3. NUVARING [Suspect]
     Active Substance: ETHINYL ESTRADIOL\ETONOGESTREL
     Indication: CONTRACEPTION
     Dosage: 1 RING CONTINUOUSLY FOR 3 WEEKS
     Route: 067

REACTIONS (4)
  - Inappropriate schedule of drug administration [Unknown]
  - Product colour issue [Not Recovered/Not Resolved]
  - Headache [Not Recovered/Not Resolved]
  - Product quality issue [Not Recovered/Not Resolved]

NARRATIVE: CASE EVENT DATE: 2018
